FAERS Safety Report 5527836-8 (Version None)
Quarter: 2007Q4

REPORT INFORMATION
  Report Type: 
  Country: None (occurrence: None)
  Receive Date: 20071128
  Receipt Date: 20071122
  Transmission Date: 20080405
  Serious: Yes (Other)
  Sender: FDA-Public Use
  Company Number: D0054782A

PATIENT
  Age: 26 Year
  Sex: Female
  Weight: 100 kg

DRUGS (1)
  1. SULTANOL [Suspect]
     Indication: ASTHMA
     Dosage: .1MG UNKNOWN
     Route: 055

REACTIONS (5)
  - DRUG INEFFECTIVE [None]
  - DYSGEUSIA [None]
  - DYSPNOEA [None]
  - NAUSEA [None]
  - PHARMACEUTICAL PRODUCT COMPLAINT [None]
